FAERS Safety Report 8379525-2 (Version None)
Quarter: 2012Q2

REPORT INFORMATION
  Report Type: 
  Country: None (occurrence: None)
  Receive Date: 20120523
  Receipt Date: 20120514
  Transmission Date: 20120825
  Serious: No
  Sender: FDA-Public Use
  Company Number: US-ASTRAZENECA-2012SE21130

PATIENT
  Age: 64 Year
  Sex: Female

DRUGS (1)
  1. CRESTOR [Suspect]
     Route: 048

REACTIONS (8)
  - INFLUENZA [None]
  - MALAISE [None]
  - PAIN [None]
  - BLOOD GLUCOSE DECREASED [None]
  - DIABETES MELLITUS [None]
  - THINKING ABNORMAL [None]
  - ASTHENIA [None]
  - COUGH [None]
